FAERS Safety Report 24096636 (Version 1)
Quarter: 2024Q3

REPORT INFORMATION
  Report Type: Spontaneous
  Country: FR (occurrence: FR)
  Receive Date: 20240716
  Receipt Date: 20240716
  Transmission Date: 20241016
  Serious: Yes (Other)
  Sender: PFIZER
  Company Number: None

PATIENT
  Age: 17 Year
  Sex: Female

DRUGS (4)
  1. CLINDAMYCIN [Suspect]
     Active Substance: CLINDAMYCIN
     Indication: Antibiotic prophylaxis
     Dosage: 600 MG, Q8H
     Route: 048
     Dates: start: 20240405
  2. CLINDAMYCIN [Suspect]
     Active Substance: CLINDAMYCIN
     Indication: Maxillofacial operation
  3. TRAMADOL [Concomitant]
     Active Substance: TRAMADOL\TRAMADOL HYDROCHLORIDE
     Indication: Pain
     Dosage: UNK
     Route: 048
     Dates: start: 20240405
  4. ACETAMINOPHEN [Concomitant]
     Active Substance: ACETAMINOPHEN
     Indication: Pain
     Dosage: UNK
     Route: 048
     Dates: start: 20240405

REACTIONS (2)
  - Oesophageal stenosis [Not Recovered/Not Resolved]
  - Oesophageal pain [Not Recovered/Not Resolved]

NARRATIVE: CASE EVENT DATE: 20240406
